FAERS Safety Report 4536876-7 (Version None)
Quarter: 2004Q4

REPORT INFORMATION
  Report Type: 
  Country: None (occurrence: None)
  Receive Date: 20041223
  Receipt Date: 20041215
  Transmission Date: 20050328
  Serious: Yes (Disabling, Other)
  Sender: FDA-Public Use
  Company Number: GB-GLAXOSMITHKLINE-B0361906A

PATIENT
  Age: 37 Year
  Sex: Female
  Weight: 66 kg

DRUGS (5)
  1. ZYBAN [Suspect]
     Dosage: 1TAB VARIABLE DOSE
     Route: 048
     Dates: start: 20041123, end: 20041203
  2. DICLOFENAC SODIUM [Concomitant]
     Dosage: 1UNIT THREE TIMES PER DAY
     Route: 065
     Dates: start: 20030728
  3. METRONIDAZOLE [Concomitant]
     Dosage: 1UNIT THREE TIMES PER DAY
     Route: 065
     Dates: end: 20041122
  4. CO-CODAMOL [Concomitant]
     Dosage: 2UNIT FOUR TIMES PER DAY
     Route: 065
     Dates: start: 20040728
  5. CO-CARELDOPA [Concomitant]
     Dosage: .5TAB AT NIGHT
     Route: 065
     Dates: start: 20040212

REACTIONS (3)
  - BLINDNESS TRANSIENT [None]
  - RASH [None]
  - SWELLING [None]
